FAERS Safety Report 23874976 (Version 1)
Quarter: 2024Q2

REPORT INFORMATION
  Report Type: Spontaneous
  Country: US (occurrence: None)
  Receive Date: 20240520
  Receipt Date: 20240520
  Transmission Date: 20240716
  Serious: Yes (Hospitalization)
  Sender: FDA-Public Use
  Company Number: None

PATIENT
  Age: 75 Year
  Sex: Male
  Weight: 88 kg

DRUGS (1)
  1. HYDROCHLOROTHIAZIDE [Suspect]
     Active Substance: HYDROCHLOROTHIAZIDE
     Indication: Hypertension
     Dosage: 12.5 MG EVERY DAY PO
     Route: 048
     Dates: start: 20240228, end: 20240326

REACTIONS (3)
  - Dizziness [None]
  - Acute kidney injury [None]
  - Blood pressure decreased [None]

NARRATIVE: CASE EVENT DATE: 20240326
